FAERS Safety Report 8866895 (Version 1)
Quarter: 2012Q4

REPORT INFORMATION
  Report Type: 
  Country: US (occurrence: US)
  Receive Date: 20121025
  Receipt Date: 20121025
  Transmission Date: 20130627
  Serious: No
  Sender: FDA-Public Use
  Company Number: US-AMGEN-USASP2012013844

PATIENT
  Age: 64 Year
  Sex: Male
  Weight: 120.18 kg

DRUGS (7)
  1. ENBREL [Suspect]
     Indication: PRODUCT USED FOR UNKNOWN INDICATION
     Dosage: 50 mg, qwk
     Route: 058
  2. MOTRIN [Concomitant]
     Dosage: 800 mg, UNK
  3. LISINOPRIL [Concomitant]
     Dosage: 10 mg, UNK
  4. METOPROLOL [Concomitant]
     Dosage: 25 mg, UNK
  5. MULTIPLE VITAMINS [Concomitant]
     Dosage: UNK
  6. ASPIRIN BUFFERED [Concomitant]
     Dosage: 325 mg, UNK
  7. VYTORIN [Concomitant]
     Dosage: UNK

REACTIONS (1)
  - Nasopharyngitis [Unknown]
